FAERS Safety Report 4855921-2 (Version None)
Quarter: 2005Q4

REPORT INFORMATION
  Report Type: 
  Country: None (occurrence: None)
  Receive Date: 20051216
  Receipt Date: 20051201
  Transmission Date: 20060501
  Serious: Yes (Life-Threatening)
  Sender: FDA-Public Use
  Company Number: SANDOZ-MAR-04-0175

PATIENT
  Age: 27 Year
  Sex: Male
  Weight: 75 kg

DRUGS (1)
  1. AMOXICILINA/CLAVULANIC ACID [Suspect]
     Indication: RESPIRATORY TRACT INFECTION
     Dosage: 1500MG PER DAY
     Route: 048
     Dates: start: 20031006, end: 20031006

REACTIONS (6)
  - ANAPHYLACTIC REACTION [None]
  - COMA [None]
  - FACE OEDEMA [None]
  - LARYNGEAL OEDEMA [None]
  - TACHYCARDIA [None]
  - URTICARIA [None]
